FAERS Safety Report 15352253 (Version 1)
Quarter: 2018Q3

REPORT INFORMATION
  Report Type: Report from Study
  Country: BD (occurrence: BD)
  Receive Date: 20180905
  Receipt Date: 20180905
  Transmission Date: 20181010
  Serious: Yes (Hospitalization, Other)
  Sender: FDA-Public Use
  Company Number: BD-SA-2018SA237081

PATIENT
  Age: 62 Year
  Sex: Male
  Weight: 74 kg

DRUGS (1)
  1. INSULIN GLARGINE [Suspect]
     Active Substance: INSULIN GLARGINE
     Indication: DIABETES MELLITUS
     Route: 065
     Dates: start: 20130912

REACTIONS (8)
  - Cerebellar stroke [Unknown]
  - Atrioventricular block [Unknown]
  - Cholecystectomy [Unknown]
  - Insulin resistance [Unknown]
  - Paralysis [Unknown]
  - Cholelithiasis [Unknown]
  - Gait inability [Unknown]
  - Hypoglycaemia [Unknown]

NARRATIVE: CASE EVENT DATE: 20150521
